FAERS Safety Report 19602805 (Version 2)
Quarter: 2023Q2

REPORT INFORMATION
  Report Type: Report from Study
  Country: GB (occurrence: GB)
  Receive Date: 20210724
  Receipt Date: 20230417
  Transmission Date: 20230722
  Serious: Yes (Other)
  Sender: FDA-Public Use
  Company Number: GB-CELLTRION INC.-2021GB009781

PATIENT

DRUGS (32)
  1. TRASTUZUMAB [Suspect]
     Active Substance: TRASTUZUMAB
     Indication: Breast cancer metastatic
     Dosage: UNK
     Route: 058
     Dates: start: 20180216, end: 20190812
  2. TRASTUZUMAB [Suspect]
     Active Substance: TRASTUZUMAB
     Indication: Breast cancer metastatic
     Dosage: 600 MG
     Route: 058
     Dates: start: 20180216, end: 20190812
  3. PACLITAXEL [Suspect]
     Active Substance: PACLITAXEL
     Indication: Breast cancer metastatic
     Dosage: 156 MG
     Route: 042
     Dates: start: 20180216, end: 20180713
  4. ADO-TRASTUZUMAB EMTANSINE [Suspect]
     Active Substance: ADO-TRASTUZUMAB EMTANSINE
     Indication: Breast cancer metastatic
     Dosage: 400 MG/KG, EVERY 3 WEEKS
     Route: 042
     Dates: start: 20190906
  5. CALCIUM CARBONATE\CHOLECALCIFEROL [Concomitant]
     Active Substance: CALCIUM CARBONATE\CHOLECALCIFEROL
     Dosage: UNK
     Route: 048
     Dates: start: 20180224
  6. BENZYDAMINE [Concomitant]
     Active Substance: BENZYDAMINE
     Dosage: 15 ML
     Route: 065
     Dates: start: 20191018
  7. BISACODYL [Concomitant]
     Active Substance: BISACODYL
     Dosage: 5 MG, QD
     Route: 048
     Dates: start: 20180320
  8. CHLORHEXIDINE [Concomitant]
     Active Substance: CHLORHEXIDINE
     Dosage: UNK
     Route: 048
     Dates: start: 20180503
  9. CLARITHROMYCIN [Concomitant]
     Active Substance: CLARITHROMYCIN
     Dosage: 1000 MG, QD
     Route: 048
     Dates: start: 20200817, end: 20200824
  10. DEXAMETHASONE [Concomitant]
     Active Substance: DEXAMETHASONE
     Dosage: 2 MG, QD
     Route: 048
     Dates: start: 20180131, end: 20180206
  11. DEXAMETHASONE [Concomitant]
     Active Substance: DEXAMETHASONE
     Dosage: 8 MG, QD
     Route: 048
     Dates: start: 20180110, end: 20180130
  12. DEXAMETHASONE [Concomitant]
     Active Substance: DEXAMETHASONE
     Dosage: 2 MG, QD
     Route: 048
     Dates: start: 20180315, end: 2018
  13. DIAZEPAM [Concomitant]
     Active Substance: DIAZEPAM
     Dosage: 10 MG
     Route: 048
     Dates: start: 20200206
  14. DIAZEPAM [Concomitant]
     Active Substance: DIAZEPAM
     Dosage: 5 MG
     Route: 065
     Dates: start: 20191212, end: 20200205
  15. DOCUSATE [Concomitant]
     Active Substance: DOCUSATE
     Indication: Prophylaxis
     Dosage: 2 CAPSULE
     Route: 048
     Dates: start: 20191125
  16. DOCUSATE [Concomitant]
     Active Substance: DOCUSATE
     Dosage: 2 CAPSULE
     Route: 048
     Dates: start: 20191125
  17. DOCUSATE [Concomitant]
     Active Substance: DOCUSATE
     Indication: Prophylaxis
     Dosage: 200 MG, QD
     Route: 048
     Dates: start: 20180222
  18. FEXOFENADINE [Concomitant]
     Active Substance: FEXOFENADINE HYDROCHLORIDE
     Dosage: 180 MG
     Route: 048
     Dates: start: 20200817
  19. FUROSEMIDE [Concomitant]
     Active Substance: FUROSEMIDE
     Dosage: 80 MG, QD
     Route: 048
     Dates: start: 20200409
  20. FUROSEMIDE [Concomitant]
     Active Substance: FUROSEMIDE
     Dosage: 80 MG, QD
     Route: 048
     Dates: start: 20200409
  21. IBUPROFEN [Concomitant]
     Active Substance: IBUPROFEN
     Dosage: UNK
     Route: 048
     Dates: start: 201912
  22. LIDOCAINE [Concomitant]
     Active Substance: LIDOCAINE
     Dosage: 11 (NO UNIT), QD
     Route: 061
     Dates: start: 20180222, end: 2018
  23. LORAZEPAM [Concomitant]
     Active Substance: LORAZEPAM
     Dosage: 1 MG, PRN
     Route: 048
     Dates: start: 20200604
  24. METOCLOPRAMIDE [Concomitant]
     Active Substance: METOCLOPRAMIDE
     Dosage: 10 MG
     Route: 048
     Dates: start: 20180216, end: 20180713
  25. METOCLOPRAMIDE [Concomitant]
     Active Substance: METOCLOPRAMIDE
     Dosage: 10 MG
     Route: 048
     Dates: start: 20180714
  26. MIRTAZAPINE [Concomitant]
     Active Substance: MIRTAZAPINE
     Dosage: 15 MG, QD
     Route: 048
     Dates: start: 20200205
  27. MORPHINE [Concomitant]
     Active Substance: MORPHINE
     Dosage: UNK
     Route: 048
     Dates: start: 20180205
  28. OMEPRAZOLE [Concomitant]
     Active Substance: OMEPRAZOLE
     Dosage: 40 MG, QD
     Route: 048
     Dates: start: 20180226
  29. MORPHINE SULFATE [Concomitant]
     Active Substance: MORPHINE SULFATE
     Dosage: 10 MG
     Route: 048
     Dates: start: 201802
  30. ACETAMINOPHEN [Concomitant]
     Active Substance: ACETAMINOPHEN
     Dosage: 1 G
     Route: 048
  31. ZOLEDRONIC ACID [Concomitant]
     Active Substance: ZOLEDRONIC ACID
     Dosage: UNK
     Route: 042
     Dates: start: 20180124, end: 20180615
  32. ZOLEDRONIC ACID [Concomitant]
     Active Substance: ZOLEDRONIC ACID
     Dosage: 3 MG
     Route: 042
     Dates: start: 20181126

REACTIONS (3)
  - Skin ulcer [Recovered/Resolved]
  - Cellulitis [Unknown]
  - Incorrect route of product administration [Unknown]

NARRATIVE: CASE EVENT DATE: 20200311
